FAERS Safety Report 26119192 (Version 1)
Quarter: 2025Q4

REPORT INFORMATION
  Report Type: Spontaneous
  Country: US (occurrence: US)
  Receive Date: 20251204
  Receipt Date: 20251204
  Transmission Date: 20260119
  Serious: No
  Sender: LEO PHARM
  Company Number: US-LEO Pharma-384567

PATIENT
  Age: 38 Year
  Sex: Male

DRUGS (2)
  1. ADBRY [Suspect]
     Active Substance: TRALOKINUMAB-LDRM
     Indication: Eczema
     Dosage: TREATMENT ONGOING??TITRATION DOSING: INJECT 2 (300 MG) PENS UNDER THE SKIN ON DAY 1 (11/05/2025), TH
     Route: 058
     Dates: start: 20251105
  2. PREDNISONE [Suspect]
     Active Substance: PREDNISONE
     Indication: Product used for unknown indication

REACTIONS (2)
  - Eczema [Unknown]
  - Loss of personal independence in daily activities [Unknown]
